FAERS Safety Report 17329193 (Version 1)
Quarter: 2020Q1

REPORT INFORMATION
  Report Type: Spontaneous
  Country: US (occurrence: US)
  Receive Date: 20200127
  Receipt Date: 20200127
  Transmission Date: 20200409
  Serious: No
  Sender: FDA-Public Use
  Company Number: US-HQ SPECIALTY-US-2019INT000038

PATIENT

DRUGS (2)
  1. TAXOL [Suspect]
     Active Substance: PACLITAXEL
     Indication: CHEMOTHERAPY
     Dosage: 1 DF, BID
     Route: 065
     Dates: start: 2014
  2. CISPLATIN. [Suspect]
     Active Substance: CISPLATIN
     Indication: CHEMOTHERAPY
     Dosage: 1 DF, BID
     Route: 065
     Dates: start: 2014

REACTIONS (1)
  - Drug hypersensitivity [Unknown]
